FAERS Safety Report 9203904 (Version 2)
Quarter: 2013Q2

REPORT INFORMATION
  Report Type: Spontaneous
  Country: DE (occurrence: DE)
  Receive Date: 20130402
  Receipt Date: 20130524
  Transmission Date: 20140414
  Serious: Yes (Hospitalization, Other)
  Sender: FDA-Public Use
  Company Number: DE-CELGENEUS-062-21660-13033264

PATIENT
  Age: 68 Year
  Sex: Female

DRUGS (8)
  1. ABRAXANE [Suspect]
     Indication: BREAST CANCER METASTATIC
     Dosage: 100 MILLIGRAM/SQ. METER
     Route: 065
     Dates: start: 20130212
  2. ABRAXANE [Suspect]
     Indication: LYMPHADENOPATHY
     Dosage: 260 MILLIGRAM/SQ. METER
     Route: 065
     Dates: start: 20130325
  3. CARBOPLATIN [Concomitant]
     Indication: BREAST CANCER METASTATIC
     Dosage: AUC 5
     Route: 065
  4. CARBOPLATIN [Concomitant]
     Indication: LYMPHADENOPATHY
  5. DEXAMETHASONE [Concomitant]
     Indication: BREAST CANCER METASTATIC
     Dosage: 8 MILLIGRAM
     Route: 065
  6. DEXAMETHASONE [Concomitant]
     Indication: LYMPHADENOPATHY
     Dosage: 16 MILLIGRAM
     Route: 065
  7. NACL [Concomitant]
     Indication: BREAST CANCER METASTATIC
     Route: 065
  8. NACL [Concomitant]
     Indication: LYMPHADENOPATHY

REACTIONS (2)
  - Hyponatraemia [Recovered/Resolved]
  - Atrial fibrillation [Not Recovered/Not Resolved]
